FAERS Safety Report 9698639 (Version 1)
Quarter: 2013Q4

REPORT INFORMATION
  Report Type: Report from Study
  Country: US (occurrence: US)
  Receive Date: 20131120
  Receipt Date: 20131120
  Transmission Date: 20140711
  Serious: Yes (Hospitalization)
  Sender: FDA-Public Use
  Company Number: US-ABBVIE-13P-163-1168925-00

PATIENT
  Age: 74 Year
  Sex: Female

DRUGS (34)
  1. HUMIRA [Suspect]
     Indication: COLITIS ULCERATIVE
  2. HUMIRA [Suspect]
     Dates: end: 201209
  3. HUMIRA [Suspect]
  4. LORAZEPAM [Suspect]
     Indication: ANXIETY
     Dosage: SAYS SHE CAN^T TAKE IT, MAKES HER TOO SLEEPY
  5. LORAZEPAM [Suspect]
     Indication: DEPRESSION
  6. CENTRUM SILVER [Concomitant]
     Indication: VITAMIN SUPPLEMENTATION
  7. CLARITIN [Concomitant]
     Indication: PRODUCT USED FOR UNKNOWN INDICATION
  8. PREMARIN [Concomitant]
     Indication: PRODUCT USED FOR UNKNOWN INDICATION
     Dosage: EVERY OTHER DAY DAY
  9. FLOVENT [Concomitant]
     Indication: ASTHMA
  10. ALBUTEROL [Concomitant]
     Indication: INHALATION THERAPY
     Dosage: NEVER USE IT
  11. MELOXICAM [Concomitant]
     Indication: OSTEOARTHRITIS
  12. LEXAPRO [Concomitant]
     Indication: ANXIETY
  13. LEXAPRO [Concomitant]
     Indication: DEPRESSION
  14. CYSTEINE [Concomitant]
     Indication: DRY EYE
  15. ESTRACE [Concomitant]
     Indication: PRODUCT USED FOR UNKNOWN INDICATION
     Route: 067
  16. FLUTICASONE [Concomitant]
     Indication: NASAL DRYNESS
  17. FLUTICASONE [Concomitant]
     Indication: SINUS DISORDER
  18. FLUTICASONE [Concomitant]
     Indication: HYPERSENSITIVITY
  19. LANSOPRAZOLE [Concomitant]
     Indication: GASTROOESOPHAGEAL REFLUX DISEASE
  20. VITAMIN D [Concomitant]
     Indication: PRODUCT USED FOR UNKNOWN INDICATION
  21. CALCIUM [Concomitant]
     Indication: PRODUCT USED FOR UNKNOWN INDICATION
  22. IRON [Concomitant]
     Indication: PRODUCT USED FOR UNKNOWN INDICATION
  23. LACTAID FAST ACT [Concomitant]
     Indication: LACTOSE INTOLERANCE
  24. HYDROXYZINE HCL [Concomitant]
     Indication: PRURITUS GENERALISED
  25. LIVALO [Concomitant]
     Indication: BLOOD CHOLESTEROL
  26. LOVAZA [Concomitant]
     Indication: CARDIAC DISORDER
  27. PENTAZOCINE AND NALOXONE [Concomitant]
     Indication: OSTEOARTHRITIS
     Dosage: 50/0.5MG, 1 TO 1.5 EVERY 4 HOURS
  28. PENTAZOCINE AND NALOXONE [Concomitant]
     Indication: PAIN
  29. BONIVA [Concomitant]
     Indication: BONE LOSS
  30. BETAMETHOSONE DIPROPIONATE [Concomitant]
     Indication: PRURITUS
  31. DESOXIMETASONE [Concomitant]
     Indication: SKIN DISORDER
  32. FLORIGEN 3 [Concomitant]
     Indication: FUNGAL INFECTION
  33. FLORIGEN 3 [Concomitant]
     Indication: PROPHYLAXIS
  34. CLOBETASOL [Concomitant]
     Indication: PRODUCT USED FOR UNKNOWN INDICATION

REACTIONS (14)
  - Megacolon [Recovering/Resolving]
  - Drug ineffective [Recovering/Resolving]
  - Anaemia [Recovering/Resolving]
  - Haemorrhage [Recovering/Resolving]
  - Colitis [Recovering/Resolving]
  - Malaise [Recovering/Resolving]
  - Pyrexia [Recovering/Resolving]
  - Feeling abnormal [Recovering/Resolving]
  - Chills [Recovering/Resolving]
  - Tremor [Recovering/Resolving]
  - Crohn^s disease [Recovering/Resolving]
  - Gastrointestinal inflammation [Recovering/Resolving]
  - Respiratory tract infection [Unknown]
  - Somnolence [Unknown]
